FAERS Safety Report 17063791 (Version 1)
Quarter: 2019Q4

REPORT INFORMATION
  Report Type: Spontaneous
  Country: US (occurrence: US)
  Receive Date: 20191023
  Receipt Date: 20191023
  Transmission Date: 20200122
  Serious: Yes (Hospitalization)
  Sender: FDA-Public Use
  Company Number: None

PATIENT
  Age: 62 Year

DRUGS (14)
  1. PROBIOTIC [Concomitant]
     Active Substance: PROBIOTICS NOS
  2. CARVEDILOL. [Concomitant]
     Active Substance: CARVEDILOL
  3. PREDNISONE. [Concomitant]
     Active Substance: PREDNISONE
  4. LOMOTIL [Concomitant]
     Active Substance: ATROPINE SULFATE\DIPHENOXYLATE HYDROCHLORIDE
  5. ALEVE [Concomitant]
     Active Substance: NAPROXEN SODIUM
  6. COUMACIN [Concomitant]
  7. CAPECITABINE 500MG [Suspect]
     Active Substance: CAPECITABINE
  8. CAPECITABINE 500MG [Suspect]
     Active Substance: CAPECITABINE
     Indication: DUCTAL ADENOCARCINOMA OF PANCREAS
     Route: 048
  9. MULTIVITAMIN [Concomitant]
     Active Substance: VITAMINS
  10. ZYRTEC [Concomitant]
     Active Substance: CETIRIZINE HYDROCHLORIDE
  11. NEXIUM [Concomitant]
     Active Substance: ESOMEPRAZOLE MAGNESIUM
  12. TEMOZOLOMIDE 250MG [Suspect]
     Active Substance: TEMOZOLOMIDE
     Indication: DUCTAL ADENOCARCINOMA OF PANCREAS
     Dosage: ?          OTHER FREQUENCY:10-14 EVERY 28 DAY;?
     Route: 048
  13. PROCHLORPERAZINE. [Concomitant]
     Active Substance: PROCHLORPERAZINE
  14. GABAPENTIN. [Concomitant]
     Active Substance: GABAPENTIN

REACTIONS (2)
  - Therapy cessation [None]
  - Malaise [None]

NARRATIVE: CASE EVENT DATE: 20191001
